FAERS Safety Report 8438713-7 (Version None)
Quarter: 2012Q2

REPORT INFORMATION
  Report Type: 
  Country: None (occurrence: None)
  Receive Date: 20120608
  Receipt Date: 20120604
  Transmission Date: 20120825
  Serious: Yes (Hospitalization)
  Sender: FDA-Public Use
  Company Number: 2012SP014011

PATIENT
  Age: 41 Year
  Sex: Female
  Weight: 129.2752 kg

DRUGS (6)
  1. NUVARING [Suspect]
  2. NUVARING [Suspect]
  3. HUMIRA [Concomitant]
  4. LASIX [Concomitant]
  5. NUVARING [Suspect]
     Indication: CONTRACEPTION
     Dosage: VAG
     Route: 067
     Dates: start: 20100901, end: 20111221
  6. NAPROXEN (ALEVE) [Concomitant]

REACTIONS (20)
  - BEDRIDDEN [None]
  - SUBSTANCE USE [None]
  - MENTAL DISORDER [None]
  - LOWER RESPIRATORY TRACT INFECTION [None]
  - BLOOD CHOLESTEROL INCREASED [None]
  - PNEUMONIA [None]
  - ARTHRITIS [None]
  - SINUS TACHYCARDIA [None]
  - DEEP VEIN THROMBOSIS [None]
  - RENAL FAILURE ACUTE [None]
  - PULMONARY EMBOLISM [None]
  - PNEUMONITIS [None]
  - ANXIETY [None]
  - EAR PAIN [None]
  - LUNG NEOPLASM [None]
  - DIABETES MELLITUS [None]
  - EMOTIONAL DISORDER [None]
  - FATIGUE [None]
  - SNORING [None]
  - CARDIOMEGALY [None]
